FAERS Safety Report 10244702 (Version 1)
Quarter: 2014Q2

REPORT INFORMATION
  Report Type: Report from Study
  Country: IL (occurrence: IL)
  Receive Date: 20140618
  Receipt Date: 20140618
  Transmission Date: 20141212
  Serious: Yes (Hospitalization)
  Sender: FDA-Public Use
  Company Number: IL-GLAXOSMITHKLINE-B1005130A

PATIENT
  Age: 28 Year
  Sex: Male

DRUGS (2)
  1. PAZOPANIB [Suspect]
     Indication: SARCOMA
     Route: 048
     Dates: start: 20120801, end: 20130304
  2. IVIG [Concomitant]
     Indication: IMMUNE THROMBOCYTOPENIC PURPURA
     Route: 042
     Dates: start: 2012, end: 2013

REACTIONS (2)
  - Febrile neutropenia [Recovered/Resolved]
  - Hair colour changes [Not Recovered/Not Resolved]
